FAERS Safety Report 4999427-9 (Version None)
Quarter: 2006Q2

REPORT INFORMATION
  Report Type: 
  Country: None (occurrence: None)
  Receive Date: 20060509
  Receipt Date: 20060509
  Transmission Date: 20061013
  Serious: Yes (Life-Threatening, Hospitalization)
  Sender: FDA-Public Use
  Company Number: None

PATIENT
  Age: 64 Year
  Sex: Female
  Weight: 53.6 kg

DRUGS (12)
  1. TACROLIMUS [Suspect]
     Indication: RESPIRATORY THERAPY
     Dosage: 3MG PO Q 12 HOURS
     Route: 048
     Dates: start: 20051112, end: 20051113
  2. TACROLIMUS [Suspect]
     Indication: RESPIRATORY THERAPY
     Dosage: 3MG PO Q 12 HOURS
     Route: 048
     Dates: start: 20051120, end: 20051125
  3. TACROLIMUS [Suspect]
     Indication: RESPIRATORY THERAPY
     Dosage: 3MG PO Q 12 HOURS
     Route: 048
     Dates: start: 20051201
  4. DOCUSATE [Concomitant]
  5. SENNA [Concomitant]
  6. HEPARIN [Concomitant]
  7. RANITIDINE [Concomitant]
  8. MYCOPHENOLATE [Concomitant]
  9. METHYLPREDNISOLONE [Concomitant]
  10. VANCOMYCIN [Concomitant]
  11. CEFEPIME [Concomitant]
  12. EPIDURAL (FENTANYL/BUPIV) [Concomitant]

REACTIONS (7)
  - BLOOD CREATININE INCREASED [None]
  - CONFUSIONAL STATE [None]
  - DRUG TOXICITY [None]
  - LETHARGY [None]
  - LEUKOENCEPHALOPATHY [None]
  - MULTIPLE SCLEROSIS [None]
  - URINE OUTPUT DECREASED [None]
